FAERS Safety Report 10304898 (Version 1)
Quarter: 2014Q3

REPORT INFORMATION
  Report Type: Spontaneous
  Country: US (occurrence: None)
  Receive Date: 20140710
  Receipt Date: 20140710
  Transmission Date: 20150326
  Serious: Yes (Hospitalization)
  Sender: FDA-Public Use
  Company Number: None

PATIENT
  Age: 82 Year
  Sex: Female

DRUGS (1)
  1. BACLOFEN. [Suspect]
     Active Substance: BACLOFEN
     Indication: MUSCLE SPASMS
     Dates: start: 20140702, end: 20140709

REACTIONS (8)
  - Hallucination [None]
  - Chills [None]
  - Confusional state [None]
  - Seizure like phenomena [None]
  - Renal failure [None]
  - Tremor [None]
  - Speech disorder [None]
  - Encephalopathy [None]

NARRATIVE: CASE EVENT DATE: 20140705
